FAERS Safety Report 21224077 (Version 1)
Quarter: 2022Q3

REPORT INFORMATION
  Report Type: Spontaneous
  Country: US (occurrence: US)
  Receive Date: 20220817
  Receipt Date: 20220817
  Transmission Date: 20221026
  Serious: No
  Sender: FDA-Public Use
  Company Number: US-SA-2022MK000129

PATIENT
  Age: 57 Year
  Sex: Male

DRUGS (3)
  1. AFREZZA [Suspect]
     Active Substance: INSULIN HUMAN
     Indication: Diabetes mellitus
     Dosage: 4-16 UNITS THREE TIMES DAILY
  2. AFREZZA [Suspect]
     Active Substance: INSULIN HUMAN
     Dosage: 4-16 UNITS THREE TIMES DAILY
  3. AFREZZA [Suspect]
     Active Substance: INSULIN HUMAN
     Dosage: 4-16 UNITS THREE TIMES DAILY

REACTIONS (1)
  - Blood glucose abnormal [Unknown]
